FAERS Safety Report 15411157 (Version 1)
Quarter: 2018Q3

REPORT INFORMATION
  Report Type: Spontaneous
  Country: US (occurrence: US)
  Receive Date: 20180921
  Receipt Date: 20180921
  Transmission Date: 20181010
  Serious: No
  Sender: FDA-Public Use
  Company Number: US-PFIZER INC-2018381419

PATIENT
  Sex: Female

DRUGS (1)
  1. PREMARIN [Suspect]
     Active Substance: ESTROGENS, CONJUGATED
     Indication: CONVERSION DISORDER
     Dosage: UNK

REACTIONS (3)
  - Thermal burn [Unknown]
  - Product use in unapproved indication [Unknown]
  - Pain in extremity [Unknown]
